FAERS Safety Report 4495459-8 (Version None)
Quarter: 2004Q4

REPORT INFORMATION
  Report Type: 
  Country: None (occurrence: None)
  Receive Date: 20041108
  Receipt Date: 20041028
  Transmission Date: 20050328
  Serious: Yes (Hospitalization)
  Sender: FDA-Public Use
  Company Number: 200413275EU

PATIENT
  Age: 93 Year
  Sex: Female

DRUGS (5)
  1. LASIX [Suspect]
     Route: 048
     Dates: end: 20041011
  2. ALDACTONE [Suspect]
     Route: 048
     Dates: end: 20041011
  3. ASPIRIN [Suspect]
     Route: 048
  4. CORDARONE [Concomitant]
     Route: 048
  5. RESYL [Concomitant]
     Route: 048

REACTIONS (4)
  - ACUTE PRERENAL FAILURE [None]
  - HYPERKALAEMIA [None]
  - RENAL FAILURE [None]
  - SYNCOPE [None]
